FAERS Safety Report 10152769 (Version 1)
Quarter: 2014Q2

REPORT INFORMATION
  Report Type: Spontaneous
  Country: CA (occurrence: CA)
  Receive Date: 20140505
  Receipt Date: 20140505
  Transmission Date: 20141212
  Serious: Yes (Death, Other)
  Sender: FDA-Public Use
  Company Number: CA-PFIZER INC-2014120742

PATIENT
  Age: 25 Year
  Sex: Female

DRUGS (11)
  1. PANTOPRAZOLE [Suspect]
     Dosage: UNK
  2. NAPROXEN [Suspect]
     Dosage: UNK
     Route: 065
  3. IPILIMUMAB [Suspect]
     Dosage: 203 MG, UNK
     Route: 042
  4. CLOXACILLIN SODIUM [Suspect]
     Dosage: UNK
     Route: 065
  5. DOCUSATE SODIUM [Concomitant]
     Dosage: UNK
  6. GABAPENTIN [Concomitant]
     Dosage: UNK
  7. HYDROMORPHONE [Concomitant]
     Dosage: UNK
  8. LOPERAMIDE HCL [Concomitant]
     Dosage: UNK
  9. METHOTRIMEPRAZINE [Concomitant]
     Dosage: UNK
  10. METOCLOPRAMIDE [Concomitant]
     Dosage: UNK
  11. ONDANSETRON [Concomitant]
     Dosage: UNK

REACTIONS (5)
  - Neoplasm malignant [Fatal]
  - Renal failure [Fatal]
  - Malignant melanoma [Fatal]
  - Concomitant disease progression [Fatal]
  - Neoplasm progression [Fatal]
